FAERS Safety Report 7489473-8 (Version None)
Quarter: 2011Q2

REPORT INFORMATION
  Report Type: 
  Country: None (occurrence: None)
  Receive Date: 20110518
  Receipt Date: 20110510
  Transmission Date: 20111010
  Serious: Yes (Other)
  Sender: FDA-Public Use
  Company Number: BR-GENENTECH-303815

PATIENT
  Sex: Female
  Weight: 75 kg

DRUGS (8)
  1. TOCILIZUMAB [Suspect]
     Indication: RHEUMATOID ARTHRITIS
     Dosage: 8 MG/KG, UNK
     Route: 042
     Dates: start: 20091013
  2. TOCILIZUMAB [Suspect]
     Dosage: 8 MG/KG, UNK
     Route: 042
     Dates: start: 20091101
  3. RITUXIMAB [Suspect]
     Indication: RHEUMATOID ARTHRITIS
     Dosage: 1000 MG, UNK
     Route: 042
     Dates: start: 20100520, end: 20100602
  4. TOCILIZUMAB [Suspect]
     Dosage: 8 MG/KG, UNK
     Route: 042
     Dates: start: 20091201
  5. METHOTREXATE [Concomitant]
     Indication: PRODUCT USED FOR UNKNOWN INDICATION
     Dosage: 2.5 MG, 1/WEEK
  6. RITUXIMAB [Suspect]
     Dosage: UNK
     Route: 042
     Dates: start: 20110120
  7. TOCILIZUMAB [Suspect]
     Dosage: 8 MG/KG, UNK
     Route: 042
     Dates: start: 20100101, end: 20100101
  8. HYDROCHLOROTHIAZIDE [Concomitant]
     Indication: DIURETIC THERAPY
     Dosage: UNK

REACTIONS (7)
  - C-REACTIVE PROTEIN INCREASED [None]
  - RED BLOOD CELL SEDIMENTATION RATE INCREASED [None]
  - PNEUMONIA [None]
  - DRUG INEFFECTIVE [None]
  - PAIN IN EXTREMITY [None]
  - HYPERSENSITIVITY [None]
  - VAGINAL HAEMORRHAGE [None]
